FAERS Safety Report 14046190 (Version 2)
Quarter: 2018Q2

REPORT INFORMATION
  Report Type: Spontaneous
  Country: IT (occurrence: IT)
  Receive Date: 20171005
  Receipt Date: 20180628
  Transmission Date: 20180711
  Serious: Yes (Hospitalization)
  Sender: FDA-Public Use
  Company Number: IT-ROCHE-2001245

PATIENT
  Age: 67 Year
  Sex: Female

DRUGS (7)
  1. ROCEFIN [Suspect]
     Active Substance: CEFTRIAXONE SODIUM
     Indication: URINARY TRACT INFECTION
     Route: 030
     Dates: start: 20170805, end: 20170808
  2. CIPROXIN [Suspect]
     Active Substance: CIPROFLOXACIN
     Indication: URINARY TRACT INFECTION
     Route: 048
     Dates: start: 20170802, end: 20170803
  3. PANTORC [Concomitant]
     Active Substance: PANTOPRAZOLE SODIUM
     Route: 048
  4. MEDROL [Concomitant]
     Active Substance: METHYLPREDNISOLONE
     Dosage: TABLETS 10 MG 4 TABLETS-^
     Route: 048
  5. CALCIODIE [Concomitant]
     Route: 048
  6. DIBASE [Concomitant]
     Active Substance: CHOLECALCIFEROL
     Route: 048
  7. DIOSMECTAL [Concomitant]
     Active Substance: UNSPECIFIED INGREDIENT
     Route: 048

REACTIONS (3)
  - Erythema [Unknown]
  - Oedema mouth [Unknown]
  - Angioedema [Unknown]

NARRATIVE: CASE EVENT DATE: 20170808
